FAERS Safety Report 5024372-2 (Version None)
Quarter: 2006Q2

REPORT INFORMATION
  Report Type: 
  Country: None (occurrence: None)
  Receive Date: 20060609
  Receipt Date: 20060609
  Transmission Date: 20061013
  Serious: Yes (Hospitalization)
  Sender: FDA-Public Use
  Company Number: None

PATIENT
  Age: 72 Year
  Sex: Female
  Weight: 82.1011 kg

DRUGS (3)
  1. CARIMUNE [Suspect]
     Indication: BILIARY CIRRHOSIS
     Dosage: 72 GM QD X 2 DOSES IV DRIP
     Route: 041
     Dates: start: 20060601, end: 20060602
  2. CARIMUNE [Suspect]
     Indication: HYPERSPLENISM
     Dosage: 72 GM QD X 2 DOSES IV DRIP
     Route: 041
     Dates: start: 20060601, end: 20060602
  3. CARIMUNE [Suspect]
     Indication: PANCYTOPENIA
     Dosage: 72 GM QD X 2 DOSES IV DRIP
     Route: 041
     Dates: start: 20060601, end: 20060602

REACTIONS (6)
  - ABDOMINAL PAIN [None]
  - BODY TEMPERATURE INCREASED [None]
  - DIARRHOEA [None]
  - NAUSEA [None]
  - VOMITING [None]
  - WEIGHT INCREASED [None]
